FAERS Safety Report 8387092-2 (Version None)
Quarter: 2012Q2

REPORT INFORMATION
  Report Type: 
  Country: None (occurrence: None)
  Receive Date: 20120525
  Receipt Date: 20120517
  Transmission Date: 20120825
  Serious: Yes (Life-Threatening, Other)
  Sender: FDA-Public Use
  Company Number: US-ACTELION-A-NJ2012-65477

PATIENT

DRUGS (4)
  1. ALBUTEROL [Concomitant]
  2. FLOVENT [Concomitant]
  3. TRACLEER [Suspect]
     Indication: PULMONARY ARTERIAL HYPERTENSION
     Dosage: UNK
     Route: 048
     Dates: start: 20061016
  4. SINGULAIR [Concomitant]

REACTIONS (1)
  - LUNG NEOPLASM MALIGNANT [None]
